APPROVED DRUG PRODUCT: MARINOL
Active Ingredient: DRONABINOL
Strength: 10MG
Dosage Form/Route: CAPSULE;ORAL
Application: N018651 | Product #003 | TE Code: AB
Applicant: ALKEM LABORATORIES LTD
Approved: May 31, 1985 | RLD: Yes | RS: No | Type: RX